FAERS Safety Report 5639170-6 (Version None)
Quarter: 2008Q1

REPORT INFORMATION
  Report Type: 
  Country: None (occurrence: None)
  Receive Date: 20080222
  Receipt Date: 20080212
  Transmission Date: 20080703
  Serious: Yes (Death, Hospitalization)
  Sender: FDA-Public Use
  Company Number: 100#08#2008-00775

PATIENT
  Age: 58 Year
  Sex: Female

DRUGS (9)
  1. METFORMIN                (METFORMIN) [Suspect]
     Indication: DIABETES MELLITUS
     Dosage: 850 MG EVERY 12 HOURS;
  2. NPH INSULIN (INSULIN) [Concomitant]
  3. ENOXAPARIN SODIUM [Concomitant]
  4. TORSEMIDE [Concomitant]
  5. ENALAPRIL MALEATE [Concomitant]
  6. CLORAZEPATE DIPOTASSIUM                 (CLORAZEPATE) [Concomitant]
  7. ALLOPURINOL [Concomitant]
  8. MIRTAZAPINE [Concomitant]
  9. DIGOXIN [Concomitant]

REACTIONS (11)
  - ANURIA [None]
  - APALLIC SYNDROME [None]
  - CARDIAC ARREST [None]
  - GLASGOW COMA SCALE ABNORMAL [None]
  - HAEMODIALYSIS [None]
  - HYPERKALAEMIA [None]
  - METABOLIC ACIDOSIS [None]
  - MYDRIASIS [None]
  - PNEUMONIA ASPIRATION [None]
  - VENTRICULAR FIBRILLATION [None]
  - VISUAL DISTURBANCE [None]
